FAERS Safety Report 4454878-6 (Version None)
Quarter: 2004Q3

REPORT INFORMATION
  Report Type: 
  Country: None (occurrence: None)
  Receive Date: 20040825
  Receipt Date: 20040427
  Transmission Date: 20050211
  Serious: No
  Sender: FDA-Public Use
  Company Number: 206146

PATIENT
  Age: 34 Year
  Sex: Male

DRUGS (2)
  1. RAPTIVA [Suspect]
     Indication: PSORIASIS
     Dosage: 1/WEEK, SUBCUTANEOUS
     Route: 058
     Dates: start: 20040413, end: 20040413
  2. RAPTIVA [Suspect]
     Indication: PSORIASIS
     Dosage: 1/WEEK, SUBCUTANEOUS
     Route: 058
     Dates: start: 20040420

REACTIONS (1)
  - NASOPHARYNGITIS [None]
